FAERS Safety Report 7606161-5 (Version None)
Quarter: 2011Q3

REPORT INFORMATION
  Report Type: 
  Country: None (occurrence: None)
  Receive Date: 20110705
  Receipt Date: 20110620
  Transmission Date: 20111222
  Serious: Yes (Disabling, Other)
  Sender: FDA-Public Use
  Company Number: 2011MA007843

PATIENT
  Sex: Female

DRUGS (3)
  1. METOCLOPRAMIDE [Suspect]
     Indication: DYSPEPSIA
     Dates: start: 20070501, end: 20090501
  2. METOCLOPRAMIDE [Suspect]
     Indication: GASTROOESOPHAGEAL REFLUX DISEASE
     Dates: start: 20070501, end: 20090501
  3. METOCLOPRAMIDE [Suspect]
     Indication: ABDOMINAL DISTENSION
     Dates: start: 20070501, end: 20090501

REACTIONS (12)
  - NERVOUS SYSTEM DISORDER [None]
  - SPEECH DISORDER [None]
  - ECONOMIC PROBLEM [None]
  - DYSTONIA [None]
  - PAIN [None]
  - TARDIVE DYSKINESIA [None]
  - EXTRAPYRAMIDAL DISORDER [None]
  - EXTRAOCULAR MUSCLE DISORDER [None]
  - MULTIPLE INJURIES [None]
  - TREMOR [None]
  - PARKINSON'S DISEASE [None]
  - INJURY [None]
